FAERS Safety Report 15132589 (Version 1)
Quarter: 2018Q3

REPORT INFORMATION
  Report Type: Spontaneous
  Country: GB (occurrence: GB)
  Receive Date: 20180712
  Receipt Date: 20180712
  Transmission Date: 20181010
  Serious: Yes (Hospitalization)
  Sender: FDA-Public Use
  Company Number: GB-ROCHE-2153106

PATIENT
  Age: 84 Year
  Sex: Male
  Weight: 81.5 kg

DRUGS (2)
  1. TINZAPARIN [Concomitant]
     Active Substance: TINZAPARIN
     Indication: PULMONARY EMBOLISM
     Route: 065
  2. ATEZOLIZUMAB. [Suspect]
     Active Substance: ATEZOLIZUMAB
     Indication: NON-SMALL CELL LUNG CANCER
     Route: 042
     Dates: start: 20180529

REACTIONS (7)
  - Blood bilirubin increased [Unknown]
  - Gastritis [Recovering/Resolving]
  - Melaena [Recovering/Resolving]
  - Fatigue [Recovering/Resolving]
  - Asthenia [Recovering/Resolving]
  - Gastrointestinal vascular malformation haemorrhagic [Recovering/Resolving]
  - Helicobacter infection [Recovering/Resolving]

NARRATIVE: CASE EVENT DATE: 20180611
